FAERS Safety Report 8230777-9 (Version None)
Quarter: 2012Q1

REPORT INFORMATION
  Report Type: 
  Country: None (occurrence: None)
  Receive Date: 20120320
  Receipt Date: 20120306
  Transmission Date: 20120608
  Serious: Yes (Life-Threatening, Hospitalization, Other)
  Sender: FDA-Public Use
  Company Number: 1146929

PATIENT
  Age: 42 Year
  Sex: Male
  Weight: 104 kg

DRUGS (9)
  1. PREDNISOLONE [Suspect]
     Indication: DIFFUSE LARGE B-CELL LYMPHOMA
     Dosage: 60 MG  MGILLIGRAM(S), INTRAVENOUS
     Dates: start: 20111122
  2. NEUPOGEN [Suspect]
     Indication: DIFFUSE LARGE B-CELL LYMPHOMA
     Dosage: 800 MG MILLIGRAM(S), INTRAVENOUS
     Route: 042
     Dates: start: 20111123
  3. CITALOPRAM HYDROBROMIDE [Concomitant]
  4. (AMISULPRIDE) [Concomitant]
  5. VINCRISTINE SULFATE [Suspect]
     Indication: DIFFUSE LARGE B-CELL LYMPHOMA
     Dosage: 2 MG MILLIGRAM(S), INTRAVENOUS
     Route: 042
     Dates: start: 20111122
  6. CYCLOPHOSPHAMIDE [Suspect]
     Indication: DIFFUSE LARGE B-CELL LYMPHOMA
     Dosage: 1600 MGILLIGRAM(S), INTRAVENOUS
     Route: 042
     Dates: start: 20111122
  7. DOXORUBICIN HCL [Suspect]
     Indication: DIFFUSE LARGE B-CELL LYMPHOMA
     Dosage: 110 MG MILLIGRAM(S),  INTRAVENOUS
     Route: 042
     Dates: start: 20111122
  8. CLOZAPINE [Suspect]
     Indication: SCHIZOPHRENIA
     Dosage: 200 MG  MGILLIGRAM(S), 1 DAY, ORAL
     Route: 048
     Dates: start: 20100915, end: 20111201
  9. (PIRENZEPINE) [Concomitant]

REACTIONS (7)
  - DEEP VEIN THROMBOSIS [None]
  - DIFFUSE LARGE B-CELL LYMPHOMA STAGE II [None]
  - WHITE BLOOD CELL COUNT INCREASED [None]
  - AGRANULOCYTOSIS [None]
  - NEUTROPENIA [None]
  - LEUKOPENIA [None]
  - NEUTROPHIL COUNT INCREASED [None]
